FAERS Safety Report 9310828 (Version 1)
Quarter: 2013Q2

REPORT INFORMATION
  Report Type: Spontaneous
  Country: US (occurrence: None)
  Receive Date: 20130523
  Receipt Date: 20130523
  Transmission Date: 20140414
  Serious: No
  Sender: FDA-Public Use
  Company Number: None

PATIENT
  Age: 86 Year
  Sex: Male

DRUGS (1)
  1. ZYTIGA [Suspect]
     Route: 048
     Dates: start: 20130309

REACTIONS (4)
  - Back pain [None]
  - Oedema peripheral [None]
  - Erythema [None]
  - Skin warm [None]
